FAERS Safety Report 6855230-6 (Version None)
Quarter: 2010Q3

REPORT INFORMATION
  Report Type: 
  Country: None (occurrence: None)
  Receive Date: 20100719
  Receipt Date: 20100708
  Transmission Date: 20110219
  Serious: Yes (Hospitalization)
  Sender: FDA-Public Use
  Company Number: US-BIOGENIDEC-2010BI016831

PATIENT
  Age: 44 Year
  Sex: Female

DRUGS (6)
  1. TYSABRI [Suspect]
     Indication: MULTIPLE SCLEROSIS
     Route: 042
     Dates: start: 20100119, end: 20100511
  2. ZOLOFT [Concomitant]
     Indication: DEPRESSION
  3. RELPAX [Concomitant]
     Indication: MIGRAINE
  4. TOPAMAX [Concomitant]
  5. INJECTIONS (NOS) [Concomitant]
     Indication: MIGRAINE
  6. OXYBUTIN [Concomitant]
     Indication: INCONTINENCE

REACTIONS (3)
  - JUGULAR VEIN THROMBOSIS [None]
  - POOR VENOUS ACCESS [None]
  - PROCEDURAL PAIN [None]
